FAERS Safety Report 22068197 (Version 1)
Quarter: 2023Q1

REPORT INFORMATION
  Report Type: Spontaneous
  Country: GB (occurrence: GB)
  Receive Date: 20230307
  Receipt Date: 20230307
  Transmission Date: 20230417
  Serious: Yes (Death, Hospitalization)
  Sender: FDA-Public Use
  Company Number: GB-TEVA-2023-GB-2863600

PATIENT
  Age: 68 Year
  Sex: Male

DRUGS (13)
  1. TACROLIMUS [Suspect]
     Active Substance: TACROLIMUS
     Indication: Immunosuppressant drug therapy
     Route: 065
  2. MYCOPHENOLATE MOFETIL [Suspect]
     Active Substance: MYCOPHENOLATE MOFETIL
     Indication: Immunosuppressant drug therapy
     Route: 065
  3. CASPOFUNGIN [Suspect]
     Active Substance: CASPOFUNGIN
     Indication: Aspergillus infection
     Route: 042
  4. BASILIXIMAB [Suspect]
     Active Substance: BASILIXIMAB
     Indication: Immunosuppressant drug therapy
     Route: 065
  5. METHYLPREDNISOLONE [Suspect]
     Active Substance: METHYLPREDNISOLONE
     Indication: Immunosuppressant drug therapy
     Route: 065
  6. METHYLPREDNISOLONE [Suspect]
     Active Substance: METHYLPREDNISOLONE
     Indication: Drug therapy
     Route: 042
  7. VORICONAZOLE [Suspect]
     Active Substance: VORICONAZOLE
     Indication: Aspergillus infection
     Route: 048
  8. VORICONAZOLE [Suspect]
     Active Substance: VORICONAZOLE
     Route: 048
  9. VORICONAZOLE [Suspect]
     Active Substance: VORICONAZOLE
     Route: 042
  10. AMOXICILLIN [Concomitant]
     Active Substance: AMOXICILLIN
     Indication: Drug therapy
     Route: 065
  11. TEMOCILLIN [Concomitant]
     Active Substance: TEMOCILLIN
     Indication: Drug therapy
     Route: 065
  12. LINEZOLID [Concomitant]
     Active Substance: LINEZOLID
     Indication: Enterococcal infection
     Route: 065
  13. ERTAPENEM [Concomitant]
     Active Substance: ERTAPENEM
     Indication: Pneumonia acinetobacter
     Route: 065

REACTIONS (12)
  - Aspergillus infection [Fatal]
  - Multiple organ dysfunction syndrome [Fatal]
  - Renal tubular necrosis [Unknown]
  - Haemodynamic instability [Unknown]
  - Hypotension [Unknown]
  - Abscess [Unknown]
  - Infective aneurysm [Unknown]
  - Renal artery perforation [Unknown]
  - Pneumonia acinetobacter [Unknown]
  - Haemorrhage [Recovered/Resolved]
  - Iliac artery disease [Recovered/Resolved]
  - Drug ineffective [Fatal]
